FAERS Safety Report 7534996-6 (Version None)
Quarter: 2011Q2

REPORT INFORMATION
  Report Type: 
  Country: None (occurrence: None)
  Receive Date: 20110609
  Receipt Date: 20110603
  Transmission Date: 20111010
  Serious: No
  Sender: FDA-Public Use
  Company Number: US-BIOGENIDEC-2010BI022724

PATIENT
  Sex: Female

DRUGS (1)
  1. TYSABRI [Suspect]
     Indication: MULTIPLE SCLEROSIS
     Route: 042
     Dates: start: 20100504

REACTIONS (7)
  - MUSCULAR WEAKNESS [None]
  - DYSSTASIA [None]
  - VEIN DISORDER [None]
  - MALAISE [None]
  - FATIGUE [None]
  - ARTHROPATHY [None]
  - VEIN DISCOLOURATION [None]
